FAERS Safety Report 5763999-7 (Version None)
Quarter: 2008Q2

REPORT INFORMATION
  Report Type: 
  Country: None (occurrence: None)
  Receive Date: 20080609
  Receipt Date: 20080305
  Transmission Date: 20081010
  Serious: No
  Sender: FDA-Public Use
  Company Number: 002#2#2008-00099

PATIENT
  Age: 72 Year
  Sex: Female
  Weight: 54.4316 kg

DRUGS (10)
  1. NEUPRO [Suspect]
     Indication: PARKINSON'S DISEASE
     Dosage: 2MG/24H,1 IN 1 D,TRANSDERMAL
     Route: 062
     Dates: start: 20080305
  2. CARBIDOPA AND LEVODOPA [Concomitant]
  3. HYDROCHLOROTHIAZIDE [Concomitant]
  4. LEVOTHYROXINE SODIUM [Concomitant]
  5. SERTRALINE HYDROCHLORIDE [Concomitant]
  6. OXYBUTYNIN [Concomitant]
  7. VIT D [Concomitant]
  8. FERROUS SULFATE TAB [Concomitant]
  9. TYLENOL [Concomitant]
  10. UNISOM [Concomitant]

REACTIONS (2)
  - CHILLS [None]
  - FEELING COLD [None]
